FAERS Safety Report 24629071 (Version 1)
Quarter: 2024Q4

REPORT INFORMATION
  Report Type: Spontaneous
  Country: US (occurrence: US)
  Receive Date: 20241118
  Receipt Date: 20241118
  Transmission Date: 20250115
  Serious: No
  Sender: AUROBINDO
  Company Number: US-AUROBINDO-AUR-APL-2024-008420

PATIENT
  Age: 74 Year
  Sex: Female
  Weight: 58 kg

DRUGS (2)
  1. CLONAZEPAM [Suspect]
     Active Substance: CLONAZEPAM
     Indication: Familial tremor
     Dosage: UNK, TWO TIMES A DAY (AT BEFORE GOING TO BED AND IN THE MORNING)
     Route: 048
  2. LISINOPRIL [Concomitant]
     Active Substance: LISINOPRIL
     Indication: Blood pressure measurement
     Dosage: UNK
     Route: 065

REACTIONS (4)
  - Hypokinesia [Unknown]
  - Tremor [Unknown]
  - Product substitution issue [Unknown]
  - Product formulation issue [Unknown]
